FAERS Safety Report 19924695 (Version 2)
Quarter: 2021Q4

REPORT INFORMATION
  Report Type: Report from Study
  Country: CA (occurrence: CA)
  Receive Date: 20211006
  Receipt Date: 20211129
  Transmission Date: 20220303
  Serious: Yes (Hospitalization)
  Sender: FDA-Public Use
  Company Number: CA-HLS-202108568

PATIENT
  Sex: Male

DRUGS (5)
  1. CLOZARIL [Suspect]
     Active Substance: CLOZAPINE
     Indication: Product used for unknown indication
     Dosage: 325MG PO HS X3 MONTHS
     Route: 065
     Dates: start: 20210713
  2. CLOZARIL [Suspect]
     Active Substance: CLOZAPINE
     Indication: Product used for unknown indication
     Dosage: 325MG QHS X3 MONTHS
     Route: 065
     Dates: start: 20210909
  3. CLOZARIL [Suspect]
     Active Substance: CLOZAPINE
     Indication: Product used for unknown indication
     Dosage: UNKNOWN
     Route: 048
     Dates: start: 20200527
  4. IRON [Concomitant]
     Active Substance: IRON
     Dosage: 300MG DAILY
     Route: 065
     Dates: start: 20211109
  5. OLANZAPINE [Concomitant]
     Active Substance: OLANZAPINE
     Dosage: 10MG QHS DAILY
     Route: 065
     Dates: start: 20211109

REACTIONS (2)
  - Anaemia [Unknown]
  - Product dose omission in error [Recovered/Resolved]
